FAERS Safety Report 16656410 (Version 4)
Quarter: 2021Q1

REPORT INFORMATION
  Report Type: Report from Study
  Country: US (occurrence: US)
  Receive Date: 20190801
  Receipt Date: 20210203
  Transmission Date: 20210419
  Serious: Yes (Hospitalization, Other)
  Sender: FDA-Public Use
  Company Number: PHEH2019US031653

PATIENT
  Sex: Male

DRUGS (2)
  1. ENTRESTO [Suspect]
     Active Substance: SACUBITRIL\VALSARTAN
     Indication: CARDIAC FAILURE
  2. ENTRESTO [Suspect]
     Active Substance: SACUBITRIL\VALSARTAN
     Indication: CARDIAC FAILURE CONGESTIVE
     Dosage: 100 MG, BID (49/51)MG?,(24/26 MG 2X IN THE MORNING AND 2X AT NIGHT)
     Route: 048
     Dates: start: 2019

REACTIONS (14)
  - Tremor [Unknown]
  - Peripheral swelling [Unknown]
  - Balance disorder [Unknown]
  - Joint swelling [Unknown]
  - Fall [Unknown]
  - Hypoacusis [Unknown]
  - Neuropathy peripheral [Unknown]
  - Pelvic fracture [Unknown]
  - Asthenia [Unknown]
  - Fatigue [Unknown]
  - Hip fracture [Unknown]
  - Pericardial effusion [Unknown]
  - Visual impairment [Unknown]
  - Weight increased [Unknown]
